FAERS Safety Report 7757140-9 (Version None)
Quarter: 2011Q3

REPORT INFORMATION
  Report Type: 
  Country: None (occurrence: None)
  Receive Date: 20110916
  Receipt Date: 20110907
  Transmission Date: 20111222
  Serious: Yes (Hospitalization)
  Sender: FDA-Public Use
  Company Number: US-BAYER-2011-021180

PATIENT
  Age: 28 Year
  Sex: Female
  Weight: 96.145 kg

DRUGS (10)
  1. YASMIN [Suspect]
     Dosage: UNK
     Route: 048
  2. HYDROCODONE BITARTRATE AND ACETAMINOPHEN [Concomitant]
     Dosage: UNK
     Dates: start: 20041101
  3. DAYPRO [Concomitant]
  4. YASMIN [Suspect]
     Route: 048
  5. BIAXIN [Concomitant]
     Dosage: UNK
     Dates: start: 20041101
  6. LEVAQUIN [Concomitant]
     Dosage: UNK
     Dates: start: 20050104
  7. YASMIN [Suspect]
     Dosage: UNK
     Route: 048
     Dates: start: 20041201, end: 20070307
  8. YASMIN [Suspect]
     Route: 048
  9. CODAL DH SYRUP [Concomitant]
     Dosage: UNK
     Dates: start: 20041101
  10. PROMETHAZINE [Concomitant]
     Dosage: UNK
     Dates: start: 20041101

REACTIONS (8)
  - DIARRHOEA [None]
  - GALLBLADDER DISORDER [None]
  - PAIN [None]
  - FOOD INTOLERANCE [None]
  - DYSPEPSIA [None]
  - CHOLELITHIASIS [None]
  - EMOTIONAL DISTRESS [None]
  - CHOLECYSTITIS CHRONIC [None]
